FAERS Safety Report 12416602 (Version 1)
Quarter: 2016Q2

REPORT INFORMATION
  Report Type: Spontaneous
  Country: CN (occurrence: CN)
  Receive Date: 20160530
  Receipt Date: 20160530
  Transmission Date: 20160815
  Serious: Yes (Other)
  Sender: FDA-Public Use
  Company Number: CN-JNJFOC-20130519878

PATIENT

DRUGS (2)
  1. RISPERDAL [Suspect]
     Active Substance: RISPERIDONE
     Indication: SCHIZOPHRENIA
     Dosage: INITIALLY 1 MG/D AND GRADUALLY INCREASED TO 3~6 MG/D WITHIN 2 WEEKS
     Route: 048
  2. RISPERDAL [Suspect]
     Active Substance: RISPERIDONE
     Indication: SCHIZOPHRENIA
     Dosage: 3~6 MG/D WITHIN 2 WEEKS
     Route: 048

REACTIONS (3)
  - Sinus tachycardia [Unknown]
  - Electrocardiogram ST-T change [Unknown]
  - Sinus bradycardia [Unknown]
